FAERS Safety Report 7942021-8 (Version None)
Quarter: 2011Q4

REPORT INFORMATION
  Report Type: 
  Country: None (occurrence: None)
  Receive Date: 20111128
  Receipt Date: 20111118
  Transmission Date: 20120403
  Serious: Yes (Hospitalization)
  Sender: FDA-Public Use
  Company Number: US-BAYER-201033134NA

PATIENT
  Age: 22 Year
  Sex: Female
  Weight: 49.887 kg

DRUGS (3)
  1. PREVACID [Concomitant]
     Indication: HYPERCHLORHYDRIA
     Dosage: 30 MG, QD
  2. YAZ [Suspect]
     Dosage: UNK
     Dates: start: 20091101, end: 20091201
  3. YAZ [Suspect]
     Dosage: UNK UNK, QD
     Route: 048
     Dates: start: 20081201, end: 20090401

REACTIONS (10)
  - CONSTIPATION [None]
  - DEPRESSION [None]
  - SCAR [None]
  - DYSPEPSIA [None]
  - ANXIETY [None]
  - CHOLECYSTECTOMY [None]
  - CHOLECYSTITIS [None]
  - ABDOMINAL DISTENSION [None]
  - DIARRHOEA [None]
  - FLATULENCE [None]
